FAERS Safety Report 17326764 (Version 1)
Quarter: 2020Q1

REPORT INFORMATION
  Report Type: Spontaneous
  Country: US (occurrence: US)
  Receive Date: 20200127
  Receipt Date: 20200127
  Transmission Date: 20200409
  Serious: No
  Sender: FDA-Public Use
  Company Number: US-ABBVIE-19K-163-2861666-00

PATIENT
  Age: 42 Year
  Sex: Female
  Weight: 47.67 kg

DRUGS (3)
  1. PERJETA [Concomitant]
     Active Substance: PERTUZUMAB
     Indication: BREAST CANCER
  2. HERCEPTIN [Concomitant]
     Active Substance: TRASTUZUMAB
     Indication: BREAST CANCER
  3. LUPRON DEPOT [Suspect]
     Active Substance: LEUPROLIDE ACETATE
     Indication: BREAST CANCER
     Route: 030
     Dates: start: 201810

REACTIONS (3)
  - Vulvovaginal dryness [Not Recovered/Not Resolved]
  - Off label use [Unknown]
  - Hot flush [Not Recovered/Not Resolved]

NARRATIVE: CASE EVENT DATE: 201812
